FAERS Safety Report 6516893-8 (Version None)
Quarter: 2009Q4

REPORT INFORMATION
  Report Type: 
  Country: None (occurrence: None)
  Receive Date: 20091223
  Receipt Date: 20091213
  Transmission Date: 20100525
  Serious: Yes (Hospitalization, Other)
  Sender: FDA-Public Use
  Company Number: DE-AMGEN-UK371467

PATIENT
  Sex: Female
  Weight: 66 kg

DRUGS (6)
  1. NEULASTA [Suspect]
     Indication: CHEMOTHERAPY
     Route: 065
     Dates: start: 20090805
  2. NEUPOGEN [Suspect]
     Indication: CHEMOTHERAPY
     Route: 065
     Dates: start: 20090812
  3. TAXOTERE [Concomitant]
     Route: 065
     Dates: end: 20091125
  4. FLUOROURACIL [Concomitant]
     Dates: start: 20090805
  5. EPIRUBICIN [Concomitant]
     Dates: start: 20090805
  6. CYCLOPHOSPHAMIDE [Concomitant]
     Dates: start: 20090805

REACTIONS (13)
  - BONE PAIN [None]
  - BRONCHITIS [None]
  - GASTROINTESTINAL DISORDER [None]
  - GENERAL PHYSICAL HEALTH DETERIORATION [None]
  - HYPERSENSITIVITY [None]
  - INFECTION [None]
  - LEUKOCYTOSIS [None]
  - MUCOUS MEMBRANE DISORDER [None]
  - NIGHT SWEATS [None]
  - OFF LABEL USE [None]
  - PYREXIA [None]
  - SENSORY DISTURBANCE [None]
  - WHITE BLOOD CELL COUNT ABNORMAL [None]
